FAERS Safety Report 9016038 (Version 1)
Quarter: 2013Q1

REPORT INFORMATION
  Report Type: Spontaneous
  Country: TW (occurrence: TW)
  Receive Date: 20130116
  Receipt Date: 20130116
  Transmission Date: 20140127
  Serious: Yes (Other)
  Sender: FDA-Public Use
  Company Number: TW-MYLANLABS-2013S1000316

PATIENT
  Age: 54 Year
  Sex: Female

DRUGS (4)
  1. CLOZAPINE [Suspect]
     Indication: SCHIZOPHRENIA
     Dosage: 50 MG/DAY TITRATED UP TO 150 MG/DAY
     Route: 065
  2. CLOZAPINE [Suspect]
     Indication: SCHIZOPHRENIA
     Dosage: TITRATED UP TO 200 MG/DAY ON DAY 6
     Route: 065
  3. VALPROATE [Concomitant]
     Indication: CONVULSION PROPHYLAXIS
     Dosage: 750 MG/D
     Route: 065
  4. ZOLPIDEM [Concomitant]
     Indication: INSOMNIA
     Dosage: 10MG BEFORE SLEEP
     Route: 065

REACTIONS (1)
  - Hypomania [Recovered/Resolved]
